FAERS Safety Report 10120753 (Version 1)
Quarter: 2014Q2

REPORT INFORMATION
  Report Type: Spontaneous
  Country: US (occurrence: US)
  Receive Date: 20140425
  Receipt Date: 20140425
  Transmission Date: 20141212
  Serious: Yes (Other)
  Sender: FDA-Public Use
  Company Number: CHPA2014US005677

PATIENT
  Sex: 0

DRUGS (3)
  1. ASCRIPTIN BUFFERED MAX STRENGTH CAPLETS [Suspect]
     Indication: BACK PAIN
     Route: 065
  2. ASCRIPTIN BUFFERED MAX STRENGTH CAPLETS [Suspect]
     Indication: OFF LABEL USE
  3. BAYER ASPIRIN [Suspect]
     Dosage: 500 MG, UNK
     Route: 065

REACTIONS (2)
  - Haematochezia [Recovered/Resolved]
  - Abdominal discomfort [Recovered/Resolved]
